APPROVED DRUG PRODUCT: EXELON
Active Ingredient: RIVASTIGMINE
Strength: 4.6MG/24HR
Dosage Form/Route: FILM, EXTENDED RELEASE;TRANSDERMAL
Application: N022083 | Product #001 | TE Code: AB
Applicant: SANDOZ INC
Approved: Jul 6, 2007 | RLD: Yes | RS: No | Type: RX